FAERS Safety Report 5129673-5 (Version None)
Quarter: 2006Q4

REPORT INFORMATION
  Report Type: 
  Country: None (occurrence: None)
  Receive Date: 20061018
  Receipt Date: 20061016
  Transmission Date: 20070319
  Serious: Yes (Death)
  Sender: FDA-Public Use
  Company Number: CA-GLAXOSMITHKLINE-A0623812A

PATIENT
  Age: 77 Year
  Sex: Male
  Weight: 112 kg

DRUGS (9)
  1. DUTASTERIDE [Suspect]
     Indication: PROSTATE CANCER
     Dosage: .5MG PER DAY
     Route: 048
     Dates: start: 20060811
  2. KETOCONAZOLE [Suspect]
     Indication: PROSTATE CANCER
     Dosage: 400MG THREE TIMES PER DAY
     Route: 048
     Dates: start: 20060811
  3. HYDROCORTISONE ACETATE [Suspect]
     Indication: PROSTATE CANCER
     Dosage: 40MG PER DAY
     Route: 048
     Dates: start: 20060811
  4. METOPROLOL TARTRATE [Concomitant]
     Dosage: 25MG PER DAY
     Route: 048
     Dates: end: 20061010
  5. ASPIRIN [Concomitant]
     Indication: HYPERTENSION
     Route: 048
     Dates: end: 20061010
  6. PLAVIX [Concomitant]
     Indication: PROPHYLAXIS
     Dosage: 75MG PER DAY
     Route: 048
  7. LIPITOR [Concomitant]
     Indication: BLOOD CHOLESTEROL INCREASED
     Dosage: 10MG PER DAY
     Route: 048
     Dates: end: 20060801
  8. CASODEX [Concomitant]
     Indication: ANTIANDROGEN THERAPY
     Dosage: 50MG PER DAY
     Route: 048
     Dates: end: 20061010
  9. ZOLADEX [Concomitant]
     Indication: ANTIANDROGEN THERAPY
     Route: 042
     Dates: end: 20061010

REACTIONS (1)
  - CARDIAC DEATH [None]
